FAERS Safety Report 21221619 (Version 1)
Quarter: 2022Q3

REPORT INFORMATION
  Report Type: Spontaneous
  Country: US (occurrence: None)
  Receive Date: 20220816
  Receipt Date: 20220816
  Transmission Date: 20221027
  Serious: Yes (Life-Threatening, Hospitalization, Other)
  Sender: FDA-Public Use
  Company Number: None

PATIENT
  Age: 99 Year
  Sex: Female
  Weight: 50 kg

DRUGS (1)
  1. MIRALAX [Suspect]
     Active Substance: POLYETHYLENE GLYCOL 3350
     Indication: Constipation
     Dosage: OTHER QUANTITY : 1 PACKET OF POWDER;?OTHER FREQUENCY : ONE TIME DOSE;?
     Route: 048
     Dates: start: 20220811, end: 20220811

REACTIONS (12)
  - Pleural effusion [None]
  - Aortic stenosis [None]
  - Dizziness [None]
  - Syncope [None]
  - Cyanosis [None]
  - Tachycardia [None]
  - Anxiety [None]
  - Tremor [None]
  - Chills [None]
  - Infection [None]
  - Abdominal distension [None]
  - Nausea [None]

NARRATIVE: CASE EVENT DATE: 20220811
